FAERS Safety Report 5276681-X (Version None)
Quarter: 2007Q1

REPORT INFORMATION
  Report Type: 
  Country: None (occurrence: None)
  Receive Date: 20070327
  Receipt Date: 20070315
  Transmission Date: 20070707
  Serious: Yes (Other)
  Sender: FDA-Public Use
  Company Number: PHHO2007BE04949

PATIENT
  Age: 24 Year
  Sex: Male

DRUGS (2)
  1. LEPONEX [Suspect]
     Dosage: 100 - 300 MG DAILY
     Route: 048
     Dates: start: 20060511, end: 20070102
  2. RANITIDINE HCL [Concomitant]

REACTIONS (3)
  - PAIN IN JAW [None]
  - PAROTITIS [None]
  - SWELLING [None]
